FAERS Safety Report 19588877 (Version 5)
Quarter: 2021Q4

REPORT INFORMATION
  Report Type: Spontaneous
  Country: ES (occurrence: ES)
  Receive Date: 20210721
  Receipt Date: 20211222
  Transmission Date: 20220303
  Serious: Yes (Death, Hospitalization)
  Sender: FDA-Public Use
  Company Number: ES-CELGENE-ESP-20210701629

PATIENT
  Age: 68 Year
  Sex: Female
  Weight: 80 kg

DRUGS (13)
  1. AZACITIDINE [Suspect]
     Active Substance: AZACITIDINE
     Indication: Acute myeloid leukaemia
     Route: 058
     Dates: start: 20210111, end: 20210112
  2. AZACITIDINE [Suspect]
     Active Substance: AZACITIDINE
     Route: 058
     Dates: start: 20210113, end: 20210529
  3. VENETOCLAX [Suspect]
     Active Substance: VENETOCLAX
     Indication: Acute myeloid leukaemia
     Dosage: 400 MILLIGRAM
     Route: 048
     Dates: start: 20210111, end: 20210201
  4. VENETOCLAX [Suspect]
     Active Substance: VENETOCLAX
     Dosage: 400 MILLIGRAM
     Route: 048
     Dates: start: 20210426, end: 20210615
  5. OMEPRAZOLE [Concomitant]
     Active Substance: OMEPRAZOLE
     Indication: Gastritis prophylaxis
     Dosage: 20 MILLIGRAM
     Route: 048
     Dates: start: 20200607
  6. KYTRIL [Concomitant]
     Active Substance: GRANISETRON HYDROCHLORIDE
     Indication: Premedication
     Route: 048
     Dates: start: 20210111
  7. BISOPROLOL [Concomitant]
     Active Substance: BISOPROLOL
     Indication: Bundle branch block right
     Dosage: 2.5 MILLIGRAM
     Route: 048
     Dates: start: 20210318
  8. FOLIC ACID [Concomitant]
     Active Substance: FOLIC ACID
     Indication: Supportive care
     Dosage: 10 MILLIGRAM
     Route: 048
     Dates: start: 20210413
  9. Optovite [Concomitant]
     Indication: Anaemia
     Dosage: 1000 MICROGRAM
     Route: 030
     Dates: start: 20210420
  10. ACYCLOVIR [Concomitant]
     Active Substance: ACYCLOVIR
     Indication: Infection prophylaxis
     Dosage: 800 MILLIGRAM
     Route: 048
     Dates: start: 20210426
  11. FUROSEMIDE [Concomitant]
     Active Substance: FUROSEMIDE
     Indication: Hypertension
     Dosage: 40 MILLIGRAM
     Route: 048
     Dates: start: 20210426
  12. POSACONAZOLE [Concomitant]
     Active Substance: POSACONAZOLE
     Indication: Fungal infection
     Dosage: 300 MILLIGRAM
     Route: 041
     Dates: start: 20210625, end: 20210626
  13. POSACONAZOLE [Concomitant]
     Active Substance: POSACONAZOLE
     Dosage: 100 MILLIGRAM
     Route: 048
     Dates: start: 20210627

REACTIONS (2)
  - Malignant neoplasm progression [Fatal]
  - Cellulitis [Not Recovered/Not Resolved]

NARRATIVE: CASE EVENT DATE: 20210624
